FAERS Safety Report 6496541-6 (Version None)
Quarter: 2009Q4

REPORT INFORMATION
  Report Type: 
  Country: None (occurrence: None)
  Receive Date: 20091210
  Receipt Date: 20091116
  Transmission Date: 20100525
  Serious: Yes (Life-Threatening, Hospitalization)
  Sender: FDA-Public Use
  Company Number: IND1-CA-2009-0051

PATIENT
  Age: 66 Year
  Sex: Female

DRUGS (18)
  1. INDOCIN [Suspect]
     Indication: GOUT
     Dosage: 150 MG (50 MG, 3 IN 1 D); PER ORAL
     Route: 048
     Dates: start: 20090110
  2. BLINDED THERAPY [Suspect]
     Indication: THROMBOSIS PROPHYLAXIS
     Dosage: UNKNOWN; PER ORAL
     Route: 048
     Dates: start: 20090731
  3. LASIX [Concomitant]
  4. MAXERAN (METOCLOPRAMIDE HYDROCHLORIDE) (METOCLOPRAMIDE HYDROCHLORIDE) [Concomitant]
  5. PANTOPRAZOLE [Concomitant]
  6. SLOW-K (POTASSIUM CHLORIDE) (POTASSIUM CHLORIDE) [Concomitant]
  7. SYNTHROID (LEVOTHYROXINE SODIUM) (LEVOTHYROXINE SODIUM) [Concomitant]
  8. ZOCOR [Concomitant]
  9. AMIODARONE HYDROCHLORIDE (AMIODARONE HYDROCHLORIDE) (AMIODARONE HYDROC [Concomitant]
  10. ASPIRIN [Concomitant]
  11. CALCIUM CARBONATE (CALCIUM CARBONATE) (CALCIUM CARBONATE) [Concomitant]
  12. INSULIN (INSULIN) (INSULIN) [Concomitant]
  13. METOPROLOL TARTRATE (METOPROLOL TARTRATE) (METOPROLOL TARTRATE) [Concomitant]
  14. QUETIAPINE FUMARATE (QUETIAPINE FUMARATE) (QUETIAPINE FUMARATE) [Concomitant]
  15. SERTRALINE HCL (SERTRALINE HYDROCHLORIDE) (SERTRALINE HYDROCHLORIDE) [Concomitant]
  16. SPIRONOLACTONE [Concomitant]
  17. TEMAZEPAM [Concomitant]
  18. VITAMIN D (ERGOCALCIFEROL) (ERGOCALCIFEROL) [Concomitant]

REACTIONS (7)
  - CARDIOACTIVE DRUG LEVEL INCREASED [None]
  - DIZZINESS [None]
  - HAEMATOCHEZIA [None]
  - HEART RATE DECREASED [None]
  - NODAL RHYTHM [None]
  - RENAL FAILURE ACUTE [None]
  - THERAPEUTIC AGENT TOXICITY [None]
